FAERS Safety Report 9238122 (Version 1)
Quarter: 2013Q2

REPORT INFORMATION
  Report Type: Spontaneous
  Country: US (occurrence: None)
  Receive Date: 20130415
  Receipt Date: 20130415
  Transmission Date: 20140414
  Serious: Yes (Hospitalization)
  Sender: FDA-Public Use
  Company Number: 7203720

PATIENT
  Age: 46 Year
  Sex: Male

DRUGS (4)
  1. METFORMIN (METFORMIN) [Suspect]
     Indication: DIABETES MELLITUS
  2. LEVOTHYROXINE (LEVOTHYROXINE) [Suspect]
     Indication: HYPOTHYROIDISM
  3. SERTRALINE (SERTRALINE) [Suspect]
     Indication: DEPRESSION
  4. NYQUIL [Suspect]

REACTIONS (4)
  - Serotonin syndrome [None]
  - Cough [None]
  - Insomnia [None]
  - Hyperreflexia [None]
